FAERS Safety Report 5547651-9 (Version None)
Quarter: 2007Q4

REPORT INFORMATION
  Report Type: 
  Country: None (occurrence: None)
  Receive Date: 20071211
  Receipt Date: 20071206
  Transmission Date: 20080405
  Serious: Yes (Hospitalization)
  Sender: FDA-Public Use
  Company Number: DE-BOEHRINGER INGELHEIM PHARMACEUTICALS, INC.-2007-DE-07229DE

PATIENT
  Sex: Male

DRUGS (1)
  1. APTIVUS [Suspect]

REACTIONS (1)
  - ANGINA PECTORIS [None]
